FAERS Safety Report 12654645 (Version 4)
Quarter: 2017Q1

REPORT INFORMATION
  Report Type: Spontaneous
  Country: US (occurrence: US)
  Receive Date: 20160816
  Receipt Date: 20170313
  Transmission Date: 20170428
  Serious: Yes (Life-Threatening, Hospitalization, Other)
  Sender: FDA-Public Use
  Company Number: US-AUROBINDO-AUR-APL-2016-10353

PATIENT
  Age: 20 Year
  Sex: Male

DRUGS (3)
  1. LOPERAMIDE HCL [Suspect]
     Active Substance: LOPERAMIDE HYDROCHLORIDE
     Dosage: 144 UNK, 72 PILLS
     Route: 065
  2. LOPERAMIDE HCL [Suspect]
     Active Substance: LOPERAMIDE HYDROCHLORIDE
     Indication: DRUG WITHDRAWAL SYNDROME
     Dosage: 288 MG, HIGH DOSES, 2 BOTTLES OF 2MG TABLETS
     Route: 065
     Dates: start: 201507
  3. LOPERAMIDE HCL [Suspect]
     Active Substance: LOPERAMIDE HYDROCHLORIDE
     Dosage: 48 MG, 24 PILLS EACH MORNING
     Dates: start: 201401

REACTIONS (14)
  - Congestive cardiomyopathy [Recovered/Resolved]
  - Drug abuse [Unknown]
  - Ventricular arrhythmia [Recovered/Resolved]
  - Electrocardiogram abnormal [Recovered/Resolved]
  - Hypokinesia [Recovered/Resolved]
  - Torsade de pointes [Recovered/Resolved]
  - Electrocardiogram QT prolonged [Recovered/Resolved]
  - Left ventricular dysfunction [Recovered/Resolved]
  - Syncope [Unknown]
  - Overdose [Unknown]
  - Dyspnoea [Unknown]
  - Ventricular fibrillation [Recovered/Resolved]
  - Sinus bradycardia [Recovered/Resolved]
  - Palpitations [Recovered/Resolved]

NARRATIVE: CASE EVENT DATE: 201508
